FAERS Safety Report 7529529-4 (Version None)
Quarter: 2011Q2

REPORT INFORMATION
  Report Type: 
  Country: None (occurrence: None)
  Receive Date: 20110607
  Receipt Date: 20110531
  Transmission Date: 20111010
  Serious: No
  Sender: FDA-Public Use
  Company Number: JP-PFIZER INC-2011079352

PATIENT
  Age: 66 Year
  Sex: Male

DRUGS (6)
  1. ALINAMIN F [Concomitant]
     Dosage: 75 MG, 1X/DAY
     Route: 048
  2. BUTENAFINE HYDROCHLORIDE [Concomitant]
  3. AMLODIPINE [Suspect]
     Indication: HYPERTENSION
     Dosage: 5 MG, DAILY
     Route: 048
     Dates: start: 20070322, end: 20070920
  4. VALSARTAN [Concomitant]
     Dosage: 80 MG, 1X/DAY
     Route: 048
     Dates: start: 20070322
  5. RIBOFLAVIN TAB [Concomitant]
     Dosage: 60 MG, 1X/DAY
     Route: 048
  6. AMLODIPINE [Suspect]
     Dosage: 2.5 MG, DAILY
     Route: 048
     Dates: start: 20070920, end: 20090323

REACTIONS (7)
  - ECZEMA [None]
  - SEASONAL ALLERGY [None]
  - DRUG INEFFECTIVE [None]
  - HYPERSENSITIVITY [None]
  - SEBORRHOEIC DERMATITIS [None]
  - FREQUENT BOWEL MOVEMENTS [None]
  - URTICARIA [None]
